FAERS Safety Report 18028443 (Version 2)
Quarter: 2020Q3

REPORT INFORMATION
  Report Type: Spontaneous
  Country: JP (occurrence: JP)
  Receive Date: 20200716
  Receipt Date: 20200807
  Transmission Date: 20201103
  Serious: Yes (Other)
  Sender: FDA-Public Use
  Company Number: JP-ROCHE-2642707

PATIENT
  Age: 81 Year
  Sex: Male

DRUGS (17)
  1. EYLEA [Suspect]
     Active Substance: AFLIBERCEPT
     Route: 065
     Dates: start: 20180604
  2. EYLEA [Suspect]
     Active Substance: AFLIBERCEPT
     Route: 065
     Dates: start: 20190301
  3. EYLEA [Suspect]
     Active Substance: AFLIBERCEPT
     Route: 065
     Dates: start: 20200304
  4. EYLEA [Suspect]
     Active Substance: AFLIBERCEPT
     Route: 065
     Dates: start: 20170605
  5. EYLEA [Suspect]
     Active Substance: AFLIBERCEPT
     Route: 065
     Dates: start: 20170907
  6. EYLEA [Suspect]
     Active Substance: AFLIBERCEPT
     Route: 065
     Dates: start: 20180903
  7. EYLEA [Suspect]
     Active Substance: AFLIBERCEPT
     Route: 065
     Dates: start: 20190610
  8. EYLEA [Suspect]
     Active Substance: AFLIBERCEPT
     Route: 065
     Dates: start: 20160609
  9. EYLEA [Suspect]
     Active Substance: AFLIBERCEPT
     Route: 065
     Dates: start: 20171204
  10. EYLEA [Suspect]
     Active Substance: AFLIBERCEPT
     Route: 065
     Dates: start: 20160901
  11. EYLEA [Suspect]
     Active Substance: AFLIBERCEPT
     Route: 065
     Dates: start: 20191206
  12. EYLEA [Suspect]
     Active Substance: AFLIBERCEPT
     Route: 065
     Dates: start: 20181205
  13. EYLEA [Suspect]
     Active Substance: AFLIBERCEPT
     Indication: AGE-RELATED MACULAR DEGENERATION
     Dosage: UNK
     Route: 065
     Dates: start: 20160310
  14. EYLEA [Suspect]
     Active Substance: AFLIBERCEPT
     Route: 065
     Dates: start: 20170301
  15. EYLEA [Suspect]
     Active Substance: AFLIBERCEPT
     Route: 065
     Dates: start: 20180301
  16. EYLEA [Suspect]
     Active Substance: AFLIBERCEPT
     Route: 065
     Dates: start: 20161201
  17. BEOVU [Suspect]
     Active Substance: BROLUCIZUMAB-DBLL
     Indication: AGE-RELATED MACULAR DEGENERATION
     Route: 031
     Dates: start: 20200603

REACTIONS (13)
  - Endophthalmitis [Recovered/Resolved]
  - Vision blurred [Unknown]
  - Vasculitis [Recovered/Resolved]
  - Conjunctivitis [Unknown]
  - Retinal vascular occlusion [Recovered/Resolved]
  - Uveitis [Recovered/Resolved]
  - Eye pain [Recovered/Resolved]
  - Hyperaemia [Recovering/Resolving]
  - Visual acuity reduced [Recovered/Resolved]
  - Eye inflammation [Recovered/Resolved]
  - Anterior chamber inflammation [Recovering/Resolving]
  - Haemorrhage [Recovered/Resolved]
  - Vitreous opacities [Recovering/Resolving]

NARRATIVE: CASE EVENT DATE: 20200615
